FAERS Safety Report 23847659 (Version 2)
Quarter: 2024Q2

REPORT INFORMATION
  Report Type: Spontaneous
  Country: ES (occurrence: ES)
  Receive Date: 20240513
  Receipt Date: 20240514
  Transmission Date: 20240715
  Serious: Yes (Hospitalization)
  Sender: FDA-Public Use
  Company Number: None

PATIENT
  Age: 77 Year
  Sex: Male

DRUGS (2)
  1. METHOTREXATE [Suspect]
     Active Substance: METHOTREXATE
     Indication: Psoriasis
     Dates: start: 20240212, end: 20240323
  2. LITHIUM [Suspect]
     Active Substance: LITHIUM
     Indication: Bipolar disorder
     Dates: start: 20090630, end: 20240323

REACTIONS (4)
  - Dizziness [Recovered/Resolved]
  - Nausea [Recovered/Resolved]
  - Confusional state [Recovered/Resolved]
  - Slow speech [Recovered/Resolved]

NARRATIVE: CASE EVENT DATE: 20240215
